FAERS Safety Report 5121599-6 (Version None)
Quarter: 2006Q4

REPORT INFORMATION
  Report Type: 
  Country: None (occurrence: None)
  Receive Date: 20061006
  Receipt Date: 20060926
  Transmission Date: 20070319
  Serious: Yes (Other)
  Sender: FDA-Public Use
  Company Number: US-JNJFOC-20060800516

PATIENT
  Sex: Female
  Weight: 56.7 kg

DRUGS (5)
  1. REMICADE [Suspect]
     Indication: PSORIATIC ARTHROPATHY
     Route: 042
  2. PROTONIX [Concomitant]
  3. ASACOL [Concomitant]
  4. NORVASC [Concomitant]
  5. DETROL [Concomitant]

REACTIONS (2)
  - EYE PAIN [None]
  - VISUAL DISTURBANCE [None]
